FAERS Safety Report 9035549 (Version 1)
Quarter: 2013Q1

REPORT INFORMATION
  Report Type: Report from Study
  Country: US (occurrence: US)
  Receive Date: 20130129
  Receipt Date: 20130129
  Transmission Date: 20140127
  Serious: No
  Sender: FDA-Public Use
  Company Number: US-ABBOTT-12P-163-0905731-00

PATIENT
  Age: 66 Year
  Sex: Female

DRUGS (6)
  1. HUMIRA 40 MG/0.8 ML PEN [Suspect]
     Indication: CROHN^S DISEASE
  2. PENTASA [Concomitant]
     Indication: CROHN^S DISEASE
     Route: 048
  3. PENTASA [Concomitant]
     Indication: ANTIINFLAMMATORY THERAPY
  4. FISH OIL [Concomitant]
     Indication: ROUTINE HEALTH MAINTENANCE
     Route: 048
  5. VITAMIN B12 [Concomitant]
     Indication: ASTHENIA
     Dosage: MONTHLY AT DOCTOR^S OFFICE
     Route: 030
  6. VITAMIN B12 [Concomitant]
     Indication: ANAEMIA

REACTIONS (1)
  - Abdominal pain upper [Recovered/Resolved]
